FAERS Safety Report 25356893 (Version 1)
Quarter: 2025Q2

REPORT INFORMATION
  Report Type: Spontaneous
  Country: GB (occurrence: GB)
  Receive Date: 20250526
  Receipt Date: 20250526
  Transmission Date: 20250716
  Serious: Yes (Other)
  Sender: TEVA
  Company Number: GB-009507513-2281644

PATIENT
  Age: 78 Year
  Sex: Male

DRUGS (6)
  1. AMLODIPINE [Suspect]
     Active Substance: AMLODIPINE BESYLATE
     Indication: Blood pressure abnormal
     Route: 048
     Dates: start: 20250211
  2. TAMSULOSIN [Concomitant]
     Active Substance: TAMSULOSIN
     Indication: Prostate cancer
     Route: 048
     Dates: start: 20220210
  3. PEMBROLIZUMAB [Suspect]
     Active Substance: PEMBROLIZUMAB
     Indication: Adenocarcinoma of colon
     Route: 042
     Dates: start: 20221018, end: 20241004
  4. LEVOTHYROXINE [Concomitant]
     Active Substance: LEVOTHYROXINE
     Indication: Hypothyroidism
     Route: 048
     Dates: start: 20231129
  5. LUPRON DEPOT [Concomitant]
     Active Substance: LEUPROLIDE ACETATE
     Indication: Prostate cancer
     Route: 058
     Dates: start: 20210901
  6. HYDROXOCOBALAMIN [Concomitant]
     Active Substance: HYDROXOCOBALAMIN
     Indication: Product used for unknown indication
     Route: 030
     Dates: start: 20250212

REACTIONS (1)
  - Immune-mediated dermatitis [Recovering/Resolving]

NARRATIVE: CASE EVENT DATE: 20250301
